FAERS Safety Report 9034239 (Version 1)
Quarter: 2013Q1

REPORT INFORMATION
  Report Type: Spontaneous
  Country: US (occurrence: None)
  Receive Date: 20130114
  Receipt Date: 20130114
  Transmission Date: 20140127
  Serious: Yes (Other)
  Sender: FDA-Public Use
  Company Number: KAD201301-000038

PATIENT
  Age: 73 Year
  Sex: Female

DRUGS (2)
  1. RIBAVIRIN (RIBAVIRIN) [Suspect]
     Indication: HEPATITIS C
  2. PEGINTERFERON [Suspect]
     Indication: HEPATITIS C

REACTIONS (10)
  - Rash pruritic [None]
  - Palmar-plantar erythrodysaesthesia syndrome [None]
  - Treatment failure [None]
  - Refusal of treatment by patient [None]
  - Pain [None]
  - Rash [None]
  - Discomfort [None]
  - Oedema peripheral [None]
  - Skin lesion [None]
  - Secretion discharge [None]
